FAERS Safety Report 9963759 (Version 1)
Quarter: 2014Q1

REPORT INFORMATION
  Report Type: Report from Study
  Country: US (occurrence: US)
  Receive Date: 20140305
  Receipt Date: 20140305
  Transmission Date: 20141002
  Serious: No
  Sender: FDA-Public Use
  Company Number: US-ABBVIE-13P-163-1118976-00

PATIENT
  Age: 62 Year
  Sex: Female

DRUGS (10)
  1. HUMIRA [Suspect]
     Indication: COLITIS ULCERATIVE
     Dates: start: 20130429
  2. EFFEXOR XR [Concomitant]
     Indication: MOOD ALTERED
  3. PRILOSEC [Concomitant]
     Indication: GASTRIC DISORDER
  4. MOBIC [Concomitant]
     Indication: ARTHRITIS
  5. COREG XR [Concomitant]
     Indication: HYPERTENSION
     Dosage: 5/20MG ONCE DAILY
  6. MULTIVITAMIN [Concomitant]
     Indication: PRODUCT USED FOR UNKNOWN INDICATION
  7. CALCIUM [Concomitant]
     Indication: PRODUCT USED FOR UNKNOWN INDICATION
  8. VITAMIN D3 [Concomitant]
     Indication: PRODUCT USED FOR UNKNOWN INDICATION
  9. FISH OIL [Concomitant]
     Indication: PRODUCT USED FOR UNKNOWN INDICATION
  10. TURMERIC ROOT [Concomitant]
     Indication: ARTHRITIS

REACTIONS (6)
  - Dysstasia [Unknown]
  - Asthenia [Recovered/Resolved]
  - Mobility decreased [Unknown]
  - Blood blister [Unknown]
  - Rash papular [Unknown]
  - Rash macular [Not Recovered/Not Resolved]
